FAERS Safety Report 4995891-X (Version None)
Quarter: 2006Q2

REPORT INFORMATION
  Report Type: 
  Country: None (occurrence: None)
  Receive Date: 20060508
  Receipt Date: 20050614
  Transmission Date: 20061013
  Serious: Yes (Hospitalization, Disabling)
  Sender: FDA-Public Use
  Company Number: US-MERCK-0506USA02161

PATIENT
  Age: 34 Year
  Sex: Female
  Weight: 100 kg

DRUGS (2)
  1. VIOXX [Suspect]
     Indication: JOINT INJURY
     Route: 048
     Dates: start: 20030401, end: 20030613
  2. VIOXX [Suspect]
     Route: 048

REACTIONS (8)
  - ASTHENIA [None]
  - BLOOD TRIGLYCERIDES INCREASED [None]
  - CEREBROVASCULAR ACCIDENT [None]
  - CONSTIPATION [None]
  - HYPERTENSION [None]
  - ISCHAEMIC STROKE [None]
  - PALPITATIONS [None]
  - TREATMENT NONCOMPLIANCE [None]
